FAERS Safety Report 7116891-X (Version None)
Quarter: 2010Q4

REPORT INFORMATION
  Report Type: 
  Country: None (occurrence: None)
  Receive Date: 20101122
  Receipt Date: 20101119
  Transmission Date: 20110411
  Serious: Yes (Hospitalization)
  Sender: FDA-Public Use
  Company Number: US-PFIZER INC-2010153607

PATIENT
  Sex: Male
  Weight: 59 kg

DRUGS (10)
  1. SUTENT [Suspect]
     Indication: RENAL CANCER
     Dosage: 50 MG, DAILY
     Route: 048
     Dates: start: 20101101, end: 20101101
  2. FOLIC ACID [Concomitant]
     Dosage: 1 MG, UNK
  3. TRICOR [Concomitant]
     Dosage: 30 MG, UNK
  4. VITAMIN B-12 [Concomitant]
     Dosage: UNK
  5. METFORMIN [Concomitant]
     Dosage: 500 MG, UNK
  6. GLIPIZIDE [Concomitant]
     Dosage: 10 MG, DAILY
  7. LISINOPRIL [Concomitant]
     Dosage: 2.5 MG, UNK
  8. METOPROLOL [Concomitant]
     Dosage: 25 MG, 2X/DAY
  9. SIMVASTATIN [Concomitant]
     Dosage: UNK, DAILY
  10. ASPIRIN [Concomitant]
     Dosage: 81 MG, UNK

REACTIONS (3)
  - ABDOMINAL DISCOMFORT [None]
  - DIZZINESS [None]
  - DYSSTASIA [None]
